FAERS Safety Report 25520747 (Version 1)
Quarter: 2025Q3

REPORT INFORMATION
  Report Type: Spontaneous
  Country: JP (occurrence: JP)
  Receive Date: 20250705
  Receipt Date: 20250705
  Transmission Date: 20251020
  Serious: Yes (Other)
  Sender: VKT PHARMA PRIVATE LIMITED
  Company Number: JP-VKT-000684

PATIENT
  Age: 44 Year
  Sex: Female

DRUGS (3)
  1. CLOBAZAM [Concomitant]
     Active Substance: CLOBAZAM
     Indication: Temporal lobe epilepsy
     Route: 065
  2. GABAPENTIN [Concomitant]
     Active Substance: GABAPENTIN
     Indication: Temporal lobe epilepsy
     Route: 065
  3. LEVETIRACETAM [Suspect]
     Active Substance: LEVETIRACETAM
     Indication: Temporal lobe epilepsy
     Route: 065

REACTIONS (2)
  - Paradoxical drug reaction [Recovered/Resolved]
  - Partial seizures [Recovered/Resolved]
